FAERS Safety Report 18620726 (Version 1)
Quarter: 2020Q4

REPORT INFORMATION
  Report Type: Spontaneous
  Country: NO (occurrence: NO)
  Receive Date: 20201216
  Receipt Date: 20201216
  Transmission Date: 20210114
  Serious: Yes (Hospitalization)
  Sender: FDA-Public Use
  Company Number: NO-SAMSUNG BIOEPIS-SB-2020-37178

PATIENT
  Age: 68 Year
  Sex: Male

DRUGS (5)
  1. ISOPTIN [Concomitant]
     Active Substance: VERAPAMIL HYDROCHLORIDE
     Indication: HYPERTENSION
     Dosage: 1+1+1 EVERY OTHER DAY, ALTERNATELY 1+1+1/2, C08DA01
     Route: 065
  2. FLIXABI [Suspect]
     Active Substance: INFLIXIMAB
     Indication: CROHN^S DISEASE
     Dosage: POWDER FOR CONCENTRATE FOR INFUSION, L04AB02
     Route: 065
     Dates: start: 20201016
  3. IMIGRAN [Concomitant]
     Active Substance: SUMATRIPTAN SUCCINATE
     Indication: CLUSTER HEADACHE
     Dosage: 1 DOSE WHEN NEEDED, N02CC01
     Route: 065
     Dates: start: 20080101
  4. ELIQUIS [Concomitant]
     Active Substance: APIXABAN
     Indication: ATRIAL FIBRILLATION
     Dosage: B01AF02
     Route: 065
     Dates: start: 20120101
  5. SOMAC [Concomitant]
     Active Substance: PANTOPRAZOLE SODIUM
     Indication: PRODUCT USED FOR UNKNOWN INDICATION
     Dosage: A02BC02
     Route: 065
     Dates: start: 20181001

REACTIONS (4)
  - Infection [Recovering/Resolving]
  - Vasculitis [Recovering/Resolving]
  - Product use issue [Unknown]
  - Nephritis [Recovering/Resolving]

NARRATIVE: CASE EVENT DATE: 20201101
